FAERS Safety Report 16889496 (Version 1)
Quarter: 2019Q4

REPORT INFORMATION
  Report Type: Report from Study
  Country: None (occurrence: GB)
  Receive Date: 20191007
  Receipt Date: 20191007
  Transmission Date: 20200122
  Serious: Yes (Death, Hospitalization, Disabling, Other)
  Sender: FDA-Public Use
  Company Number: GB-ABBVIE-19K-167-2952286-00

PATIENT
  Age: 78 Year
  Sex: Female

DRUGS (2)
  1. HUMIRA [Suspect]
     Active Substance: ADALIMUMAB
     Indication: RHEUMATOID ARTHRITIS
     Route: 058
     Dates: start: 20080818
  2. METHOTREXATE. [Concomitant]
     Active Substance: METHOTREXATE
     Indication: PRODUCT USED FOR UNKNOWN INDICATION
     Dates: start: 20030315

REACTIONS (6)
  - Vocal cord disorder [Fatal]
  - Gastrointestinal wall thickening [Fatal]
  - Vocal cord paralysis [Fatal]
  - Metastatic squamous cell carcinoma [Fatal]
  - Pneumonia aspiration [Fatal]
  - Mediastinal mass [Unknown]

NARRATIVE: CASE EVENT DATE: 20171107
